FAERS Safety Report 18909378 (Version 1)
Quarter: 2021Q1

REPORT INFORMATION
  Report Type: Spontaneous
  Country: US (occurrence: US)
  Receive Date: 20210218
  Receipt Date: 20210218
  Transmission Date: 20210420
  Serious: Yes (Other)
  Sender: FDA-Public Use
  Company Number: None

PATIENT
  Age: 66 Year
  Sex: Female
  Weight: 78.3 kg

DRUGS (7)
  1. ZINC. [Concomitant]
     Active Substance: ZINC
  2. CELECOXIB 100 MG CAP [Suspect]
     Active Substance: CELECOXIB
     Indication: OSTEOARTHRITIS
     Route: 048
     Dates: start: 20210202, end: 20210213
  3. ATORVASTATIN [Concomitant]
     Active Substance: ATORVASTATIN
  4. MAGNESIUM [Concomitant]
     Active Substance: MAGNESIUM
  5. VIT D [Concomitant]
     Active Substance: VITAMIN D NOS
  6. CELECOXIB 100 MG CAP [Suspect]
     Active Substance: CELECOXIB
     Indication: EXOSTOSIS
     Route: 048
     Dates: start: 20210202, end: 20210213
  7. CELECOXIB 100 MG CAP [Suspect]
     Active Substance: CELECOXIB
     Indication: ARTHRALGIA
     Route: 048
     Dates: start: 20210202, end: 20210213

REACTIONS (2)
  - Arthralgia [None]
  - Drug ineffective [None]

NARRATIVE: CASE EVENT DATE: 20210202
